FAERS Safety Report 7977183-X (Version None)
Quarter: 2011Q4

REPORT INFORMATION
  Report Type: 
  Country: None (occurrence: None)
  Receive Date: 20111213
  Receipt Date: 20111109
  Transmission Date: 20120403
  Serious: No
  Sender: FDA-Public Use
  Company Number: US-AMGEN-USASP2011058614

PATIENT
  Age: 59 Year
  Sex: Female

DRUGS (1)
  1. ENBREL [Suspect]
     Indication: RHEUMATOID ARTHRITIS
     Dosage: 50 MG WEEKLY
     Dates: start: 20110801

REACTIONS (7)
  - VERTIGO [None]
  - FATIGUE [None]
  - OROPHARYNGEAL PAIN [None]
  - NAUSEA [None]
  - HEADACHE [None]
  - SINUSITIS [None]
  - VOMITING [None]
